FAERS Safety Report 24601393 (Version 1)
Quarter: 2024Q4

REPORT INFORMATION
  Report Type: Spontaneous
  Country: CA (occurrence: CA)
  Receive Date: 20241111
  Receipt Date: 20241111
  Transmission Date: 20250115
  Serious: Yes (Other)
  Sender: BOEHRINGER INGELHEIM
  Company Number: CA-Komodo Health-a23aa0000045DVOAA2

PATIENT
  Age: 73 Year
  Sex: Female

DRUGS (1)
  1. JARDIANCE [Suspect]
     Active Substance: EMPAGLIFLOZIN
     Indication: Product used for unknown indication

REACTIONS (6)
  - Bladder cancer [Not Recovered/Not Resolved]
  - Renal cancer [Not Recovered/Not Resolved]
  - Metastases to kidney [Not Recovered/Not Resolved]
  - Bladder pain [Unknown]
  - Micturition urgency [Unknown]
  - Blood urine present [Unknown]
